FAERS Safety Report 18832865 (Version 1)
Quarter: 2021Q1

REPORT INFORMATION
  Report Type: Spontaneous
  Country: CN (occurrence: CN)
  Receive Date: 20210203
  Receipt Date: 20210203
  Transmission Date: 20210419
  Serious: Yes (Other)
  Sender: FDA-Public Use
  Company Number: CN-009507513-2102CHN000661

PATIENT
  Age: 55 Year
  Sex: Female
  Weight: 60 kg

DRUGS (3)
  1. KEYTRUDA [Suspect]
     Active Substance: PEMBROLIZUMAB
     Indication: SYMPTOMATIC TREATMENT
     Dosage: 0.2 GRAM, 1 TIME A DAY
     Route: 042
     Dates: start: 20201127, end: 20201127
  2. XGEVA [Suspect]
     Active Substance: DENOSUMAB
     Indication: SYMPTOMATIC TREATMENT
     Dosage: 120 MILLIGRAM, 1 TIME A DAY
     Route: 058
     Dates: start: 20201124, end: 20201124
  3. PYROTINIB MALEATE. [Suspect]
     Active Substance: PYROTINIB MALEATE
     Indication: SYMPTOMATIC TREATMENT
     Dosage: 320 MICROGRAM, 1 TIME A DAY; PRODUCT NAME REPORTED AS PYROTINIB MALEATE TABLETS (AIRUINI)
     Route: 048
     Dates: start: 20201127, end: 20201224

REACTIONS (1)
  - Hepatic function abnormal [Recovering/Resolving]

NARRATIVE: CASE EVENT DATE: 20201215
